FAERS Safety Report 25498857 (Version 1)
Quarter: 2025Q3

REPORT INFORMATION
  Report Type: Report from Study
  Country: US (occurrence: US)
  Receive Date: 20250701
  Receipt Date: 20250701
  Transmission Date: 20251020
  Serious: Yes (Death, Other)
  Sender: MERZ
  Company Number: US-MERZ PHARMACEUTICALS, LLC-ACO_178180_2025

PATIENT
  Age: 70 Year
  Sex: Female

DRUGS (3)
  1. INBRIJA [Suspect]
     Active Substance: LEVODOPA
     Indication: Product used for unknown indication
     Dates: start: 20250222
  2. NUPLAZID [Concomitant]
     Active Substance: PIMAVANSERIN TARTRATE
     Indication: Product used for unknown indication
     Route: 065
  3. NOURIANZ [Concomitant]
     Active Substance: ISTRADEFYLLINE
     Indication: Product used for unknown indication
     Route: 065

REACTIONS (1)
  - Death [Fatal]

NARRATIVE: CASE EVENT DATE: 20250525
